FAERS Safety Report 6860081-2 (Version None)
Quarter: 2010Q3

REPORT INFORMATION
  Report Type: 
  Country: None (occurrence: None)
  Receive Date: 20100720
  Receipt Date: 20100708
  Transmission Date: 20110219
  Serious: Yes (Hospitalization)
  Sender: FDA-Public Use
  Company Number: US-WYE-H16047010

PATIENT
  Sex: Female

DRUGS (1)
  1. EFFEXOR [Suspect]
     Dosage: 150 MG (FREQUENCY UNSPECIFIED) INCREASED TO 350 MG

REACTIONS (1)
  - BIPOLAR I DISORDER [None]
